FAERS Safety Report 10890992 (Version 1)
Quarter: 2015Q1

REPORT INFORMATION
  Report Type: Spontaneous
  Country: US (occurrence: US)
  Receive Date: 20150305
  Receipt Date: 20150305
  Transmission Date: 20150721
  Serious: Yes (Hospitalization)
  Sender: FDA-Public Use
  Company Number: US-EISAI MEDICAL RESEARCH-E2090-03356-SPO-US

PATIENT
  Age: 64 Year
  Sex: Female

DRUGS (4)
  1. LAMICTAL XR [Suspect]
     Active Substance: LAMOTRIGINE
     Dosage: 400 MG EVERY MORNING
     Route: 048
     Dates: start: 20140605
  2. KEPPRA [Suspect]
     Active Substance: LEVETIRACETAM
     Indication: PRODUCT USED FOR UNKNOWN INDICATION
     Dosage: 1500 MG EVERY MORNING AND 2000 MG EVERY EVENING
     Route: 048
  3. LAMICTAL XR [Suspect]
     Active Substance: LAMOTRIGINE
     Indication: EPILEPSY
     Dosage: LAMICTAL XR 400 MG AND LAMICTAL TABLET 50 MG EVERY MORNING
     Route: 048
     Dates: end: 20140604
  4. ZONEGRAN [Suspect]
     Active Substance: ZONISAMIDE
     Indication: PRODUCT USED FOR UNKNOWN INDICATION
     Dosage: 200 MG EVERY MORNING AND 300 MG EVERY EVENING
     Route: 048

REACTIONS (4)
  - Myoclonus [Not Recovered/Not Resolved]
  - Seizure [Not Recovered/Not Resolved]
  - Weight decreased [Unknown]
  - Decreased appetite [Unknown]
